FAERS Safety Report 11100521 (Version 1)
Quarter: 2015Q2

REPORT INFORMATION
  Report Type: Spontaneous
  Country: US (occurrence: US)
  Receive Date: 20150508
  Receipt Date: 20150508
  Transmission Date: 20150821
  Serious: No
  Sender: FDA-Public Use
  Company Number: US-SHIRE-US201504046

PATIENT

DRUGS (1)
  1. AMPHETAMINE SALTS [Suspect]
     Active Substance: AMPHETAMINE ASPARTATE\AMPHETAMINE SULFATE\DEXTROAMPHETAMINE SACCHARATE\DEXTROAMPHETAMINE SULFATE
     Indication: ATTENTION DEFICIT/HYPERACTIVITY DISORDER
     Dosage: 15 MG, UNKNOWN
     Route: 048
     Dates: start: 20150424

REACTIONS (5)
  - Drug ineffective [Unknown]
  - Impulsive behaviour [Unknown]
  - Restlessness [Unknown]
  - Negativism [Unknown]
  - Performance status decreased [Unknown]

NARRATIVE: CASE EVENT DATE: 20150424
